FAERS Safety Report 11379375 (Version 1)
Quarter: 2015Q3

REPORT INFORMATION
  Report Type: Spontaneous
  Country: QA (occurrence: None)
  Receive Date: 20150812
  Receipt Date: 20150812
  Transmission Date: 20151125
  Serious: Yes (Life-Threatening)
  Sender: FDA-Public Use
  Company Number: 2015PL000151

PATIENT
  Age: 23 Year
  Sex: Female

DRUGS (3)
  1. FERROUS (IRON) [Concomitant]
  2. LABETALOL HYDROCHLORIDE. [Suspect]
     Active Substance: LABETALOL HYDROCHLORIDE
     Indication: PRE-ECLAMPSIA
     Route: 042
  3. FOLIC ACID (FOLIC ACID) [Concomitant]
     Active Substance: FOLIC ACID

REACTIONS (5)
  - Urine output decreased [None]
  - Caesarean section [None]
  - Hyperkalaemia [None]
  - Electrocardiogram T wave abnormal [None]
  - Blood glucose increased [None]
